FAERS Safety Report 6910867-0 (Version None)
Quarter: 2010Q3

REPORT INFORMATION
  Report Type: 
  Country: None (occurrence: None)
  Receive Date: 20100716
  Receipt Date: 20090901
  Transmission Date: 20110219
  Serious: Yes (Other)
  Sender: FDA-Public Use
  Company Number: 2009245041

PATIENT
  Age: 63 Year
  Sex: Female
  Weight: 78.5 kg

DRUGS (1)
  1. CELEBREX [Suspect]
     Indication: ROTATOR CUFF SYNDROME
     Dosage: 200 MG, ORAL
     Route: 048
     Dates: start: 20090715, end: 20090716

REACTIONS (1)
  - HEART RATE INCREASED [None]
